FAERS Safety Report 4613963-6 (Version None)
Quarter: 2005Q1

REPORT INFORMATION
  Report Type: 
  Country: None (occurrence: None)
  Receive Date: 20050321
  Receipt Date: 20050125
  Transmission Date: 20050727
  Serious: Yes (Other)
  Sender: FDA-Public Use
  Company Number: FR-ROCHE-393335

PATIENT
  Age: 62 Year
  Sex: Male
  Weight: 80 kg

DRUGS (3)
  1. SAQUINAVIR [Suspect]
     Route: 048
     Dates: start: 20050121, end: 20050122
  2. RITONAVIR [Suspect]
     Route: 048
     Dates: start: 20050121, end: 20050122
  3. RIFAMPICIN [Suspect]
     Route: 048
     Dates: start: 20050107, end: 20050122

REACTIONS (5)
  - DIZZINESS [None]
  - HEPATOMEGALY [None]
  - NAUSEA [None]
  - TRANSAMINASES INCREASED [None]
  - VISION BLURRED [None]
